FAERS Safety Report 8475564-1 (Version None)
Quarter: 2012Q2

REPORT INFORMATION
  Report Type: 
  Country: None (occurrence: None)
  Receive Date: 20120628
  Receipt Date: 20120618
  Transmission Date: 20120825
  Serious: Yes (Other)
  Sender: FDA-Public Use
  Company Number: BE-TEVA-344720ISR

PATIENT
  Age: 26 Year
  Sex: Female

DRUGS (4)
  1. DOXYCYCLINE [Suspect]
     Dosage: EMPIRICAL
     Route: 065
  2. ACYCLOVIR [Suspect]
     Dosage: EMPIRICAL
     Route: 065
  3. CEFTRIAXONE [Suspect]
     Dosage: EMPIRICAL
     Route: 065
  4. AMPICILLIN [Suspect]
     Dosage: EMPIRICAL
     Route: 065

REACTIONS (3)
  - HYPOTENSION [None]
  - ENCEPHALOPATHY [None]
  - RASH [None]
